FAERS Safety Report 23448836 (Version 1)
Quarter: 2024Q1

REPORT INFORMATION
  Report Type: Spontaneous
  Country: DE (occurrence: DE)
  Receive Date: 20240128
  Receipt Date: 20240128
  Transmission Date: 20240410
  Serious: Yes (Other)
  Sender: FDA-Public Use
  Company Number: DE-ROCHE-3468642

PATIENT
  Age: 6 Decade
  Sex: Female

DRUGS (10)
  1. BEOVU [Suspect]
     Active Substance: BROLUCIZUMAB-DBLL
     Indication: Neovascular age-related macular degeneration
     Dosage: UNK
     Route: 031
     Dates: start: 20221109
  2. BEOVU [Suspect]
     Active Substance: BROLUCIZUMAB-DBLL
     Indication: Neovascular age-related macular degeneration
  3. METOPROLOL [Concomitant]
     Active Substance: METOPROLOL
     Indication: Hypertension
     Dosage: 47.5 MG
     Route: 065
     Dates: start: 202305
  4. DULOXETINE [Concomitant]
     Active Substance: DULOXETINE
     Indication: Depression
     Dosage: 30 MG
     Route: 065
     Dates: start: 202304
  5. PANTOPRAZOLE [Concomitant]
     Active Substance: PANTOPRAZOLE
     Indication: Product used for unknown indication
     Dosage: 40 MG
     Route: 065
  6. TRIAMCINOLONE [Concomitant]
     Active Substance: TRIAMCINOLONE
     Indication: Product used for unknown indication
     Dosage: 40 MG
     Route: 065
  7. ESCITALOPRAM [Concomitant]
     Active Substance: ESCITALOPRAM OXALATE
     Indication: Depression
     Dosage: 10 MG
     Route: 065
     Dates: start: 202212, end: 202304
  8. AFLIBERCEPT [Concomitant]
     Active Substance: AFLIBERCEPT
     Indication: Age-related macular degeneration
     Dosage: 0.05 ML, Q4W
     Route: 065
     Dates: start: 20220328, end: 20220913
  9. RAMIPRIL [Concomitant]
     Active Substance: RAMIPRIL
     Indication: Hypertension
     Dosage: 2.5 MG
     Route: 065
     Dates: start: 202011, end: 202306
  10. ASPIRIN [Concomitant]
     Active Substance: ASPIRIN
     Indication: Product used for unknown indication
     Dosage: 100 MG
     Route: 065
     Dates: start: 201801

REACTIONS (9)
  - Optic disc disorder [Recovered/Resolved]
  - Optic disc disorder [Recovering/Resolving]
  - Episcleritis [Recovering/Resolving]
  - Scleritis [Recovering/Resolving]
  - Retinal vasculitis [Recovered/Resolved]
  - Retinal vasculitis [Recovering/Resolving]
  - Intraocular pressure increased [Recovered/Resolved]
  - Ocular vasculitis [Unknown]
  - Ocular vasculitis [Unknown]

NARRATIVE: CASE EVENT DATE: 20230207
